FAERS Safety Report 6394290-6 (Version None)
Quarter: 2009Q4

REPORT INFORMATION
  Report Type: 
  Country: None (occurrence: None)
  Receive Date: 20091006
  Receipt Date: 20090922
  Transmission Date: 20100525
  Serious: Yes (Other)
  Sender: FDA-Public Use
  Company Number: 230257K09CAN

PATIENT
  Age: 31 Year
  Sex: Male

DRUGS (7)
  1. REBIF [Suspect]
     Indication: RELAPSING-REMITTING MULTIPLE SCLEROSIS
     Dosage: 44 MCG, 3 IN 1 WEEKS
     Dates: start: 20090414
  2. VITAMIN D [Concomitant]
  3. ACETAMINOPHEN [Concomitant]
  4. TYLENOL [Concomitant]
  5. ADVIL [Concomitant]
  6. EXCEDRIN (MIGRAINE) [Concomitant]
  7. IBUPROFEN [Concomitant]

REACTIONS (17)
  - DYSPNOEA [None]
  - EMPHYSEMA [None]
  - EYE PAIN [None]
  - GAIT DISTURBANCE [None]
  - GASTROINTESTINAL DISORDER [None]
  - HYPOAESTHESIA [None]
  - INFLUENZA LIKE ILLNESS [None]
  - LIMB INJURY [None]
  - LUNG DISORDER [None]
  - MOVEMENT DISORDER [None]
  - MUSCLE SPASMS [None]
  - MYALGIA [None]
  - PRURITUS [None]
  - SINUS DISORDER [None]
  - SPEECH DISORDER [None]
  - VISUAL IMPAIRMENT [None]
  - VITREOUS FLOATERS [None]
